FAERS Safety Report 8456028-8 (Version None)
Quarter: 2012Q2

REPORT INFORMATION
  Report Type: 
  Country: None (occurrence: None)
  Receive Date: 20120621
  Receipt Date: 20120614
  Transmission Date: 20120825
  Serious: Yes (Hospitalization)
  Sender: FDA-Public Use
  Company Number: PHHY2012JP050932

PATIENT
  Age: 90 Year
  Sex: Female

DRUGS (1)
  1. EXELON [Suspect]
     Indication: DEMENTIA ALZHEIMER'S TYPE
     Dosage: 18 MG, DAILY
     Route: 062
     Dates: start: 20120301

REACTIONS (4)
  - APATHY [None]
  - THROMBOTIC CEREBRAL INFARCTION [None]
  - HEMIPLEGIA [None]
  - DECREASED APPETITE [None]
